FAERS Safety Report 16577690 (Version 1)
Quarter: 2019Q3

REPORT INFORMATION
  Report Type: Spontaneous
  Country: US (occurrence: US)
  Receive Date: 20190716
  Receipt Date: 20190716
  Transmission Date: 20191004
  Serious: No
  Sender: FDA-Public Use
  Company Number: US-AMAG PHARMACEUTICALS, INC.-AMAG201903666

PATIENT
  Age: 53 Year
  Sex: Female
  Weight: 54.48 kg

DRUGS (1)
  1. INTRAROSA [Suspect]
     Active Substance: PRASTERONE
     Indication: SEXUAL DYSFUNCTION
     Dosage: 6.5MG,DAILY
     Route: 067
     Dates: start: 20190705, end: 20190706

REACTIONS (4)
  - Rash [Not Recovered/Not Resolved]
  - Generalised erythema [Not Recovered/Not Resolved]
  - Influenza like illness [Not Recovered/Not Resolved]
  - Off label use [Unknown]

NARRATIVE: CASE EVENT DATE: 20190705
